FAERS Safety Report 11013381 (Version 2)
Quarter: 2015Q2

REPORT INFORMATION
  Report Type: Spontaneous
  Country: US (occurrence: US)
  Receive Date: 20150411
  Receipt Date: 20150525
  Transmission Date: 20150821
  Serious: Yes (Hospitalization)
  Sender: FDA-Public Use
  Company Number: US-JNJFOC-20091106888

PATIENT
  Age: 24 Year
  Sex: Female
  Weight: 54.5 kg

DRUGS (4)
  1. PREDNISONE. [Concomitant]
     Active Substance: PREDNISONE
  2. REMICADE [Suspect]
     Active Substance: INFLIXIMAB
     Indication: COLITIS ULCERATIVE
     Route: 042
  3. REMICADE [Suspect]
     Active Substance: INFLIXIMAB
     Indication: COLITIS ULCERATIVE
     Dosage: LATE JAN-2009 OR EARLY FEB-2009
     Route: 042
     Dates: start: 2009
  4. COLAZAL [Concomitant]
     Active Substance: BALSALAZIDE DISODIUM
     Route: 048

REACTIONS (8)
  - Staphylococcal infection [Unknown]
  - Purpura [Unknown]
  - Colitis ulcerative [Recovering/Resolving]
  - Clostridium difficile infection [Unknown]
  - Dyspnoea [Recovered/Resolved]
  - Infusion related reaction [Recovered/Resolved]
  - Drug intolerance [Unknown]
  - Urticaria [Unknown]

NARRATIVE: CASE EVENT DATE: 200810
